FAERS Safety Report 21173342 (Version 1)
Quarter: 2022Q3

REPORT INFORMATION
  Report Type: Report from Study
  Country: GB (occurrence: GB)
  Receive Date: 20220804
  Receipt Date: 20220804
  Transmission Date: 20221027
  Serious: Yes (Hospitalization)
  Sender: FDA-Public Use
  Company Number: GB-PFIZER INC-PV202200022268

PATIENT
  Sex: Male
  Weight: 31.7 kg

DRUGS (12)
  1. MITOXANTRONE HYDROCHLORIDE [Suspect]
     Active Substance: MITOXANTRONE HYDROCHLORIDE
     Indication: Acute myeloid leukaemia
     Dosage: 13 MG/M2, ONCE DAILY, CYCLIC
     Route: 042
     Dates: start: 20180104, end: 20180225
  2. AMPHOTERICIN B [Concomitant]
     Active Substance: AMPHOTERICIN B
     Dosage: 100 MG INFUSION
     Dates: start: 20180318, end: 20180322
  3. FENTANYL [Concomitant]
     Active Substance: FENTANYL
     Dosage: 50 UG, SINGLE
     Dates: start: 20180323, end: 20180323
  4. LINEZOLID [Concomitant]
     Active Substance: LINEZOLID
     Indication: Antibiotic therapy
     Dosage: 330 MG, 3X/DAY
     Dates: start: 20180122
  5. METOCLOPRAMIDE [Concomitant]
     Active Substance: METOCLOPRAMIDE
     Indication: Antiemetic supportive care
     Dosage: 4 MG, 3X/DAY
     Dates: start: 20180104
  6. OCTENIDINE [Concomitant]
     Active Substance: OCTENIDINE
     Indication: Antibiotic therapy
     Dosage: ONE APPLICATION GIVEN ON EACH DAY
     Route: 061
     Dates: start: 20180322, end: 20180323
  7. ONDANSETRON [Concomitant]
     Active Substance: ONDANSETRON
     Indication: Antiemetic supportive care
     Dosage: 6 MG, 3X/DAY
     Dates: start: 20180104
  8. PIPERACILLIN AND TAZOBACTAM [Concomitant]
     Active Substance: PIPERACILLIN SODIUM\TAZOBACTAM SODIUM
     Indication: Antibiotic therapy
     Dosage: 3 G, 1X/DAY
     Dates: start: 20180101, end: 20180324
  9. POSACONAZOLE [Concomitant]
     Active Substance: POSACONAZOLE
     Indication: Antifungal treatment
     Dosage: 200 MG, 1X/DAY
     Dates: start: 20180217
  10. CHLORPHENIRAMINE MALEATE [Concomitant]
     Active Substance: CHLORPHENIRAMINE MALEATE
     Indication: Premedication
     Dosage: 5 MG
     Dates: start: 20180103
  11. HYDROCORTISONE [Concomitant]
     Active Substance: HYDROCORTISONE
     Dosage: 100 MG, ONCE AS NEEDED
     Dates: start: 20180318, end: 20180321
  12. ACETAMINOPHEN [Concomitant]
     Active Substance: ACETAMINOPHEN
     Indication: Pyrexia
     Dosage: 500 MG, 1X/DAY, AS NEEDED
     Dates: start: 20180104

REACTIONS (1)
  - Febrile neutropenia [Recovered/Resolved]

NARRATIVE: CASE EVENT DATE: 20180406
